FAERS Safety Report 5611148-8 (Version None)
Quarter: 2008Q1

REPORT INFORMATION
  Report Type: 
  Country: None (occurrence: None)
  Receive Date: 20080129
  Receipt Date: 20080118
  Transmission Date: 20080703
  Serious: Yes (Life-Threatening, Hospitalization)
  Sender: FDA-Public Use
  Company Number: 2008-00306

PATIENT

DRUGS (1)
  1. OXYTROL [Suspect]
     Dosage: 1 PATCH, SINGLE, TRANSDERMAL
     Route: 062
     Dates: start: 20080112, end: 20080112

REACTIONS (1)
  - CARDIAC ARREST [None]
